FAERS Safety Report 22277743 (Version 1)
Quarter: 2023Q2

REPORT INFORMATION
  Report Type: Spontaneous
  Country: US (occurrence: US)
  Receive Date: 20230503
  Receipt Date: 20230503
  Transmission Date: 20230722
  Serious: No
  Sender: FDA-Public Use
  Company Number: US-SA-SAC20230501000335

PATIENT
  Age: 24 Year
  Sex: Male

DRUGS (5)
  1. DUPIXENT [Suspect]
     Active Substance: DUPILUMAB
     Indication: Dermatitis atopic
     Dosage: 1SYRINGE Q14D
     Route: 058
     Dates: start: 20200121
  2. GABAPENTIN [Concomitant]
     Active Substance: GABAPENTIN
  3. METHOCARBAMOL [Concomitant]
     Active Substance: METHOCARBAMOL
  4. ACETAMINOPHEN [Concomitant]
     Active Substance: ACETAMINOPHEN
  5. IBUPROFEN [Concomitant]
     Active Substance: IBUPROFEN

REACTIONS (2)
  - Dermatitis atopic [Unknown]
  - Injection site pain [Unknown]
